FAERS Safety Report 9282708 (Version 3)
Quarter: 2013Q3

REPORT INFORMATION
  Report Type: Report from Study
  Country: RU (occurrence: RU)
  Receive Date: 20130510
  Receipt Date: 20130809
  Transmission Date: 20140515
  Serious: Yes (Life-Threatening, Hospitalization)
  Sender: FDA-Public Use
  Company Number: RU-CELGENEUS-251-C5013-13050682

PATIENT
  Age: 83 Year
  Sex: Male
  Weight: 82.3 kg

DRUGS (5)
  1. CC-5013 [Suspect]
     Indication: PLASMA CELL MYELOMA
     Dosage: 25 MILLIGRAM
     Route: 048
     Dates: start: 20071001, end: 20130102
  2. MELPHALAN [Suspect]
     Indication: PLASMA CELL MYELOMA
     Route: 065
     Dates: start: 20071001, end: 20080516
  3. PREDNISONE [Suspect]
     Indication: PLASMA CELL MYELOMA
     Route: 065
     Dates: start: 20071001, end: 20080516
  4. ASPIRINE [Concomitant]
     Indication: THROMBOSIS PROPHYLAXIS
     Route: 048
     Dates: start: 20080130
  5. FINASTERIDE [Concomitant]
     Indication: PROSTATOMEGALY
     Route: 048
     Dates: start: 20090302

REACTIONS (1)
  - Basal cell carcinoma [Not Recovered/Not Resolved]
